FAERS Safety Report 14267088 (Version 3)
Quarter: 2018Q3

REPORT INFORMATION
  Report Type: Spontaneous
  Country: US (occurrence: US)
  Receive Date: 20171211
  Receipt Date: 20180817
  Transmission Date: 20181010
  Serious: No
  Sender: FDA-Public Use
  Company Number: US-PFIZER INC-2017522791

PATIENT
  Age: 61 Year
  Sex: Female
  Weight: 55 kg

DRUGS (3)
  1. IBRANCE [Suspect]
     Active Substance: PALBOCICLIB
     Indication: BREAST CANCER METASTATIC
     Dosage: 125 MG, CYCLIC, (DAYS 1?21 Q28 DAYS)
     Route: 048
     Dates: start: 20171125
  2. IBRANCE [Suspect]
     Active Substance: PALBOCICLIB
     Dosage: 100MG, CYCLIC (D1?21 Q 28DAYS)
     Route: 048
  3. IBRANCE [Suspect]
     Active Substance: PALBOCICLIB
     Dosage: 125 MG, CYCLIC (4 DAYS ON AND 3 DAYS OFF)

REACTIONS (5)
  - Rhinorrhoea [Unknown]
  - Oropharyngeal pain [Unknown]
  - Acne [Unknown]
  - Seborrhoea [Unknown]
  - White blood cell count decreased [Unknown]

NARRATIVE: CASE EVENT DATE: 2017
